FAERS Safety Report 12238871 (Version 1)
Quarter: 2016Q2

REPORT INFORMATION
  Report Type: Spontaneous
  Country: None (occurrence: NO)
  Receive Date: 20160405
  Receipt Date: 20160405
  Transmission Date: 20160815
  Serious: Yes (Hospitalization)
  Sender: FDA-Public Use
  Company Number: NO-MEDAC PHARMA, INC.-1050223

PATIENT
  Age: 67 Year
  Sex: Male

DRUGS (6)
  1. METHOTREXATE [Suspect]
     Active Substance: METHOTREXATE
     Indication: RHEUMATOID ARTHRITIS
     Dates: start: 201601, end: 20160225
  2. CLOPIDOGREL [Concomitant]
     Active Substance: CLOPIDOGREL BISULFATE
     Route: 048
  3. CALCIGRAN FORTE [Concomitant]
  4. FOLIC ACID. [Concomitant]
     Active Substance: FOLIC ACID
  5. LIPITOR [Concomitant]
     Active Substance: ATORVASTATIN CALCIUM
     Route: 048
  6. PANTOPRAZOLE SODIUM. [Concomitant]
     Active Substance: PANTOPRAZOLE SODIUM

REACTIONS (5)
  - General physical health deterioration [Recovering/Resolving]
  - Cold sweat [Recovering/Resolving]
  - Emphysema [Recovering/Resolving]
  - Dyspnoea [Recovering/Resolving]
  - Interstitial lung disease [Recovering/Resolving]

NARRATIVE: CASE EVENT DATE: 2016
